FAERS Safety Report 6188192-8 (Version None)
Quarter: 2009Q2

REPORT INFORMATION
  Report Type: 
  Country: None (occurrence: None)
  Receive Date: 20090513
  Receipt Date: 20090505
  Transmission Date: 20091009
  Serious: Yes (Other)
  Sender: FDA-Public Use
  Company Number: US-ASTRAZENECA-2009UW11306

PATIENT
  Age: 71 Year
  Sex: Female

DRUGS (7)
  1. TOPROL-XL [Suspect]
     Route: 048
  2. CRESTOR [Suspect]
     Route: 048
  3. PLAVIX [Concomitant]
  4. IMDUR [Concomitant]
  5. GLUCOPHAGE [Concomitant]
  6. PREVACID [Concomitant]
  7. TRICO [Concomitant]

REACTIONS (2)
  - CARDIAC OPERATION [None]
  - STENT PLACEMENT [None]
